FAERS Safety Report 4876744-4 (Version None)
Quarter: 2006Q1

REPORT INFORMATION
  Report Type: 
  Country: None (occurrence: None)
  Receive Date: 20060110
  Receipt Date: 20051213
  Transmission Date: 20060701
  Serious: Yes (Hospitalization, Disabling)
  Sender: FDA-Public Use
  Company Number: US-MERCK-0512USA02103

PATIENT
  Age: 45 Year
  Sex: Female
  Weight: 91 kg

DRUGS (9)
  1. VIOXX [Suspect]
     Indication: SCIATICA
     Route: 048
     Dates: start: 20011022, end: 20011121
  2. VIOXX [Suspect]
     Route: 048
     Dates: start: 20030401, end: 20030701
  3. VIOXX [Suspect]
     Indication: OSTEOARTHRITIS
     Route: 048
     Dates: start: 20011022, end: 20011121
  4. VIOXX [Suspect]
     Route: 048
     Dates: start: 20030401, end: 20030701
  5. PREVACID [Concomitant]
     Route: 065
  6. NEURONTIN [Concomitant]
     Route: 065
  7. PREDNISONE [Concomitant]
     Route: 065
  8. ACETAMINOPHEN AND PROPOXYPHENE NAPSYLATE [Concomitant]
     Route: 065
  9. CIPRO [Concomitant]
     Route: 065

REACTIONS (3)
  - CARDIOVASCULAR DISORDER [None]
  - CHEST PAIN [None]
  - MYOCARDIAL INFARCTION [None]
